FAERS Safety Report 8796878 (Version 3)
Quarter: 2013Q3

REPORT INFORMATION
  Report Type: Report from Study
  Country: JP (occurrence: JP)
  Receive Date: 20120919
  Receipt Date: 20130812
  Transmission Date: 20140515
  Serious: Yes (Other)
  Sender: FDA-Public Use
  Company Number: JP-VERTEX PHARMACEUTICAL INC.-AE-2012-010883

PATIENT
  Age: 52 Year
  Sex: Male

DRUGS (20)
  1. VX-950 (TELAPREVIR) [Suspect]
     Indication: CHRONIC HEPATITIS C
     Dosage: 2250 MG, QD
     Route: 048
     Dates: start: 20120606, end: 20120724
  2. VX-950 (TELAPREVIR) [Suspect]
     Dosage: 1500 MG, QD
     Route: 048
     Dates: start: 20120725, end: 20120731
  3. VX-950 (TELAPREVIR) [Suspect]
     Dosage: 1500 MG, QD
     Route: 048
     Dates: start: 20120816, end: 20120828
  4. PEGINTRON [Suspect]
     Indication: CHRONIC HEPATITIS C
     Dosage: 1.33 ?G/KG, QW
     Route: 058
     Dates: start: 20120606, end: 20120626
  5. PEGINTRON [Suspect]
     Dosage: 0.67 ?G/KG, QW
     Route: 058
     Dates: start: 20120627, end: 20120704
  6. PEGINTRON [Suspect]
     Dosage: 1.33 ?G/KG, QW
     Route: 058
     Dates: start: 20120705, end: 20120731
  7. PEGINTRON [Suspect]
     Dosage: 1.33 ?G/KG, QW
     Route: 058
     Dates: start: 20120816, end: 20121114
  8. REBETOL [Suspect]
     Indication: CHRONIC HEPATITIS C
     Dosage: 600 MG, QD
     Route: 048
     Dates: start: 20120606, end: 20120626
  9. REBETOL [Suspect]
     Dosage: 400 MG, QD
     Route: 048
     Dates: start: 20120627, end: 20120703
  10. REBETOL [Suspect]
     Dosage: 200 MG, QD
     Route: 048
     Dates: start: 20120711, end: 20120731
  11. REBETOL [Suspect]
     Dosage: 200 MG, QD
     Route: 048
     Dates: start: 20120816, end: 20121114
  12. BLOPRESS [Concomitant]
     Dosage: 12 MG, QD
     Route: 048
     Dates: start: 20110513
  13. AMARYL [Concomitant]
     Dosage: 0.5 MG, QD
     Route: 048
     Dates: start: 20110513
  14. JANUVIA [Concomitant]
     Dosage: 50 MG, QD
     Route: 048
     Dates: start: 20110819
  15. ALOSITOL [Concomitant]
     Dosage: 200 MG, QD
     Route: 048
     Dates: start: 20120606
  16. PARIET [Concomitant]
     Dosage: 20 MG, QD
     Route: 048
     Dates: start: 20120613
  17. URSO [Concomitant]
     Dosage: 600 MG, QD
     Route: 048
     Dates: start: 20120620
  18. BASEN [Concomitant]
     Dosage: 0.9 MG, QD
     Route: 048
     Dates: start: 20120513
  19. ALLELOCK [Concomitant]
     Dosage: 5 MG, QD
     Route: 048
  20. NAUZELIN [Concomitant]
     Dosage: 30 MG, QD
     Route: 048

REACTIONS (2)
  - Renal impairment [Recovered/Resolved]
  - Anaemia [Recovered/Resolved]
